FAERS Safety Report 16881611 (Version 1)
Quarter: 2019Q4

REPORT INFORMATION
  Report Type: Spontaneous
  Country: US (occurrence: US)
  Receive Date: 20191003
  Receipt Date: 20191003
  Transmission Date: 20200122
  Serious: No
  Sender: FDA-Public Use
  Company Number: US-009507513-1909USA010832

PATIENT
  Age: 76 Year
  Sex: Male

DRUGS (2)
  1. PROVENTIL [Suspect]
     Active Substance: ALBUTEROL
     Indication: DYSPNOEA
  2. PROVENTIL [Suspect]
     Active Substance: ALBUTEROL
     Indication: COUGH
     Dosage: UNK UNK, TID
     Dates: start: 20190920

REACTIONS (3)
  - Product dose omission [Unknown]
  - Product quality issue [Unknown]
  - Poor quality product administered [Unknown]

NARRATIVE: CASE EVENT DATE: 20190920
